FAERS Safety Report 16460347 (Version 1)
Quarter: 2019Q2

REPORT INFORMATION
  Report Type: Spontaneous
  Country: US (occurrence: US)
  Receive Date: 20190620
  Receipt Date: 20190620
  Transmission Date: 20190711
  Serious: No
  Sender: FDA-Public Use
  Company Number: US-BAUSCH-BL-2019-016281

PATIENT
  Sex: Female

DRUGS (2)
  1. LACRISERT [Suspect]
     Active Substance: HYDROXYPROPYL CELLULOSE
     Dosage: STARTED ABOUT 1-2 MONTHS AGO; AS DIRECTED
     Route: 047
     Dates: start: 2019
  2. LACRISERT [Suspect]
     Active Substance: HYDROXYPROPYL CELLULOSE
     Indication: DRY EYE
     Dosage: STARTED 5-6 YEARS AGO; AS DIRECTED
     Route: 047

REACTIONS (5)
  - Visual impairment [Unknown]
  - Product quality issue [Unknown]
  - Ocular hyperaemia [Unknown]
  - Eye irritation [Unknown]
  - Product deposit [Unknown]

NARRATIVE: CASE EVENT DATE: 2019
